FAERS Safety Report 16067278 (Version 1)
Quarter: 2019Q1

REPORT INFORMATION
  Report Type: Report from Study
  Country: NL (occurrence: NL)
  Receive Date: 20190313
  Receipt Date: 20190313
  Transmission Date: 20190418
  Serious: Yes (Hospitalization)
  Sender: FDA-Public Use
  Company Number: NL-JNJFOC-20190314136

PATIENT
  Age: 55 Year
  Sex: Female

DRUGS (5)
  1. CHLOORTALIDON [Concomitant]
     Route: 065
  2. METFORMINE [Concomitant]
     Active Substance: METFORMIN HYDROCHLORIDE
     Route: 065
  3. NOVOMIX [Concomitant]
     Active Substance: INSULIN ASPART
     Dosage: 2DD IN THE MORNING 26 U AND IN THE EVENING 36 U
     Route: 065
  4. XARELTO [Suspect]
     Active Substance: RIVAROXABAN
     Indication: THROMBOSIS
     Dosage: 15 MG 3 WEEKS FOLLOWED BY 20 MG. DOSING: 2DD 3 WEEKS FOLLOWED BY 1DD
     Route: 048
  5. LISINOPRIL. [Concomitant]
     Active Substance: LISINOPRIL
     Route: 065

REACTIONS (3)
  - Peripheral swelling [Recovered/Resolved]
  - Erythema [Recovered/Resolved]
  - Pain in extremity [Unknown]

NARRATIVE: CASE EVENT DATE: 20180411
